APPROVED DRUG PRODUCT: TRIVAGIZOLE 3
Active Ingredient: CLOTRIMAZOLE
Strength: 2%
Dosage Form/Route: CREAM;VAGINAL
Application: N021143 | Product #001
Applicant: SUN PHARMA CANADA INC
Approved: Apr 12, 2000 | RLD: No | RS: No | Type: OTC